FAERS Safety Report 8042848-0 (Version None)
Quarter: 2012Q1

REPORT INFORMATION
  Report Type: 
  Country: None (occurrence: None)
  Receive Date: 20120112
  Receipt Date: 20120110
  Transmission Date: 20120608
  Serious: No
  Sender: FDA-Public Use
  Company Number: US-PFIZER INC-K201101091

PATIENT
  Sex: Female
  Weight: 59.41 kg

DRUGS (8)
  1. ACETAMINOPHEN [Suspect]
     Indication: HEADACHE
     Dosage: UNK
     Dates: start: 20110901
  2. SKELAXIN [Suspect]
     Indication: MUSCLE RELAXANT THERAPY
     Dosage: 800 MG, 4X/DAY
     Route: 048
     Dates: start: 20110101, end: 20110901
  3. LYRICA [Suspect]
     Dosage: 50 MG DAILY X 3 DAYS
     Dates: start: 20110101, end: 20110101
  4. ULTRAM [Suspect]
     Dosage: UNK
     Dates: start: 20110901
  5. LYRICA [Suspect]
     Indication: NEUROPATHY PERIPHERAL
     Dosage: 50 MG, 2X/DAY
     Dates: start: 20110801, end: 20110908
  6. PERCOCET [Suspect]
     Indication: PAIN
     Dosage: UNK
     Dates: start: 20110101, end: 20110101
  7. ULTRAM [Suspect]
     Dosage: 50 MG, 2X/DAY
     Dates: start: 20110908, end: 20110901
  8. ULTRAM [Suspect]
     Indication: PAIN
     Dosage: UNK
     Dates: end: 20110907

REACTIONS (1)
  - WEIGHT INCREASED [None]
